FAERS Safety Report 7527886-6 (Version None)
Quarter: 2011Q2

REPORT INFORMATION
  Report Type: 
  Country: None (occurrence: None)
  Receive Date: 20110607
  Receipt Date: 20110530
  Transmission Date: 20111010
  Serious: Yes (Hospitalization)
  Sender: FDA-Public Use
  Company Number: KR-ASTELLAS-2011JP003624

PATIENT
  Sex: Female
  Weight: 55.8 kg

DRUGS (5)
  1. SOLONDO [Concomitant]
     Dosage: 5 MG, BID
     Route: 048
     Dates: start: 20110130
  2. CELLCEPT [Concomitant]
     Dosage: 750 MG, BID
     Route: 048
     Dates: start: 20110201
  3. SEPTRA [Concomitant]
     Dosage: 2 DF, UNKNOWN/D
     Route: 048
     Dates: start: 20110130
  4. TACROLIMUS [Suspect]
     Indication: IMMUNOSUPPRESSANT DRUG THERAPY
     Dosage: 8 MG, UNKNOWN/D
     Route: 048
     Dates: start: 20110131
  5. ADALAT [Concomitant]
     Dosage: 60 MG, UNKNOWN/D
     Route: 048
     Dates: start: 20110205

REACTIONS (3)
  - COUGH [None]
  - RHINORRHOEA [None]
  - PYREXIA [None]
